FAERS Safety Report 6031788-4 (Version None)
Quarter: 2009Q1

REPORT INFORMATION
  Report Type: 
  Country: None (occurrence: None)
  Receive Date: 20090107
  Receipt Date: 20090107
  Transmission Date: 20090719
  Serious: Yes (Life-Threatening, Disabling)
  Sender: FDA-Public Use
  Company Number: None

PATIENT
  Age: 42 Year
  Sex: Female
  Weight: 64.4108 kg

DRUGS (4)
  1. MORPHINE SULFATE [Suspect]
     Indication: MULTIPLE SCLEROSIS
     Dosage: 150MG PO BID
     Route: 048
     Dates: start: 20081124
  2. MORPHINE SULFATE [Suspect]
     Indication: PAIN
     Dosage: 150MG PO BID
     Route: 048
     Dates: start: 20081124
  3. MORPHINE SULFATE [Suspect]
     Indication: MULTIPLE SCLEROSIS
     Dosage: 150MG PO BID
     Route: 048
     Dates: start: 20081224
  4. MORPHINE SULFATE [Suspect]
     Indication: PAIN
     Dosage: 150MG PO BID
     Route: 048
     Dates: start: 20081224

REACTIONS (5)
  - DRUG INEFFECTIVE [None]
  - FAMILY STRESS [None]
  - IMPAIRED SELF-CARE [None]
  - LETHARGY [None]
  - PRODUCT QUALITY ISSUE [None]
